FAERS Safety Report 9370143 (Version 1)
Quarter: 2013Q2

REPORT INFORMATION
  Report Type: Spontaneous
  Country: DE (occurrence: DE)
  Receive Date: 20130626
  Receipt Date: 20130626
  Transmission Date: 20140414
  Serious: Yes (Other)
  Sender: FDA-Public Use
  Company Number: DE-009507513-1301DEU012869

PATIENT
  Age: 52 Year
  Sex: Female
  Weight: 77 kg

DRUGS (1)
  1. INTRONA [Suspect]
     Indication: MALIGNANT MELANOMA
     Dosage: HIGH DOSE
     Dates: start: 201212, end: 201301

REACTIONS (2)
  - Troponin T increased [Recovering/Resolving]
  - Blood creatine phosphokinase increased [Recovering/Resolving]
